FAERS Safety Report 9853066 (Version 1)
Quarter: 2014Q1

REPORT INFORMATION
  Report Type: Spontaneous
  Country: US (occurrence: US)
  Receive Date: 20140129
  Receipt Date: 20140129
  Transmission Date: 20141002
  Serious: Yes (Hospitalization)
  Sender: FDA-Public Use
  Company Number: US-BAXTER-2014BAX003079

PATIENT
  Sex: Female
  Weight: 16.4 kg

DRUGS (2)
  1. DIANEAL LOW CALCIUM [Suspect]
     Indication: PERITONEAL DIALYSIS
     Route: 033
     Dates: start: 20130422, end: 20140115
  2. DIANEAL LOW CALCIUM [Suspect]
     Route: 033
     Dates: start: 20130422, end: 20140115

REACTIONS (2)
  - Fungal peritonitis [Recovered/Resolved]
  - Infection [Unknown]
